FAERS Safety Report 15211907 (Version 1)
Quarter: 2018Q3

REPORT INFORMATION
  Report Type: Spontaneous
  Country: US (occurrence: US)
  Receive Date: 20180702
  Receipt Date: 20180702
  Transmission Date: 20181010
  Serious: Yes (Other)
  Sender: FDA-Public Use
  Company Number: None

PATIENT
  Age: 47 Year
  Sex: Female

DRUGS (1)
  1. TROPI?PHEN (PHENYLEPHRINE HYDROCHLORIDE\TROPICAMIDE) [Suspect]
     Active Substance: PHENYLEPHRINE HYDROCHLORIDE\TROPICAMIDE
     Indication: OPHTHALMOLOGICAL EXAMINATION
     Dosage: ?          OTHER FREQUENCY:ONCE;?
     Route: 047
     Dates: start: 20180604, end: 20180604

REACTIONS (3)
  - Vision blurred [None]
  - Drug effect increased [None]
  - Visual impairment [None]

NARRATIVE: CASE EVENT DATE: 20180604
